FAERS Safety Report 8318827-2 (Version None)
Quarter: 2012Q2

REPORT INFORMATION
  Report Type: 
  Country: None (occurrence: None)
  Receive Date: 20120427
  Receipt Date: 20091228
  Transmission Date: 20120825
  Serious: No
  Sender: FDA-Public Use
  Company Number: US-TEVA-2009009883

PATIENT
  Sex: Female
  Weight: 66.42 kg

DRUGS (2)
  1. NUVIGIL [Suspect]
     Indication: SOMNOLENCE
  2. NUVIGIL [Suspect]
     Indication: NARCOLEPSY
     Dosage: 150 MILLIGRAM;
     Route: 048
     Dates: start: 20090822, end: 20090831

REACTIONS (11)
  - RASH [None]
  - HYPERSENSITIVITY [None]
  - DYSPHONIA [None]
  - PHARYNGEAL OEDEMA [None]
  - LACRIMATION INCREASED [None]
  - LIP SWELLING [None]
  - EYE SWELLING [None]
  - EYE PRURITUS [None]
  - THROAT IRRITATION [None]
  - LIP DRY [None]
  - DRUG INEFFECTIVE [None]
